FAERS Safety Report 6134823-8 (Version None)
Quarter: 2009Q1

REPORT INFORMATION
  Report Type: 
  Country: None (occurrence: None)
  Receive Date: 20090327
  Receipt Date: 20090323
  Transmission Date: 20090719
  Serious: Yes (Death)
  Sender: FDA-Public Use
  Company Number: PHHY2008AT17702

PATIENT
  Sex: Female
  Weight: 65 kg

DRUGS (2)
  1. EXELON [Suspect]
     Dosage: 4.5MG/24 HR
     Route: 062
     Dates: start: 20080208
  2. EXELON [Suspect]
     Dosage: 9.5 MG/24 HR
     Route: 062
     Dates: start: 20080307

REACTIONS (1)
  - DEATH [None]
